FAERS Safety Report 13422911 (Version 1)
Quarter: 2017Q2

REPORT INFORMATION
  Report Type: Spontaneous
  Country: US (occurrence: US)
  Receive Date: 20170410
  Receipt Date: 20170410
  Transmission Date: 20170830
  Serious: Yes (Hospitalization)
  Sender: FDA-Public Use
  Company Number: None

PATIENT
  Age: 86 Year
  Sex: Male
  Weight: 59.65 kg

DRUGS (1)
  1. WARFARIN [Suspect]
     Active Substance: WARFARIN
     Indication: AORTIC VALVE DISEASE MIXED
     Route: 048
     Dates: start: 19790517

REACTIONS (5)
  - Dysphagia [None]
  - International normalised ratio increased [None]
  - Contusion [None]
  - Haematoma [None]
  - Viral upper respiratory tract infection [None]

NARRATIVE: CASE EVENT DATE: 20170323
